FAERS Safety Report 4877237-0 (Version None)
Quarter: 2006Q1

REPORT INFORMATION
  Report Type: 
  Country: None (occurrence: None)
  Receive Date: 20060111
  Receipt Date: 20060104
  Transmission Date: 20060701
  Serious: Yes (Disabling)
  Sender: FDA-Public Use
  Company Number: GB-JNJFOC-20060100624

PATIENT
  Age: 67 Year
  Sex: Female
  Weight: 65 kg

DRUGS (5)
  1. REMICADE [Suspect]
     Indication: RHEUMATOID ARTHRITIS
     Route: 042
  2. METHOTREXATE [Concomitant]
     Route: 030
  3. PREDNISOLONE [Concomitant]
     Route: 065
  4. DOTHIPINE [Concomitant]
     Route: 065
  5. GLICLAZIDE [Concomitant]

REACTIONS (1)
  - FACIAL PALSY [None]
